FAERS Safety Report 16528587 (Version 1)
Quarter: 2019Q3

REPORT INFORMATION
  Report Type: Spontaneous
  Country: IN (occurrence: IN)
  Receive Date: 20190703
  Receipt Date: 20190703
  Transmission Date: 20191004
  Serious: Yes (Hospitalization)
  Sender: FDA-Public Use
  Company Number: PHHY2019IN148032

PATIENT
  Age: 25 Year
  Sex: Female

DRUGS (2)
  1. RIFAMPICIN [Suspect]
     Active Substance: RIFAMPIN
     Indication: PRODUCT USED FOR UNKNOWN INDICATION
     Dosage: 600 MG, UNK
     Route: 048
  2. ISONIAZID. [Suspect]
     Active Substance: ISONIAZID
     Indication: PRODUCT USED FOR UNKNOWN INDICATION
     Dosage: 300 MG, UNK
     Route: 048

REACTIONS (15)
  - Extensor plantar response [Unknown]
  - Pneumonia aspiration [Unknown]
  - Suicide attempt [Unknown]
  - Mydriasis [Unknown]
  - Acute hepatic failure [Unknown]
  - Allodynia [Unknown]
  - Generalised tonic-clonic seizure [Recovered/Resolved]
  - Vomiting [Unknown]
  - Kussmaul respiration [Unknown]
  - Metabolic acidosis [Recovered/Resolved]
  - Loss of consciousness [Recovered/Resolved]
  - Dehydration [Unknown]
  - Toxicity to various agents [Unknown]
  - Drug-induced liver injury [Unknown]
  - Coagulopathy [Unknown]
